FAERS Safety Report 4437532-6 (Version None)
Quarter: 2004Q3

REPORT INFORMATION
  Report Type: 
  Country: None (occurrence: None)
  Receive Date: 20040827
  Receipt Date: 20040825
  Transmission Date: 20050211
  Serious: Yes (Hospitalization, Disabling)
  Sender: FDA-Public Use
  Company Number: NLWYE905516JUL04

PATIENT
  Age: 62 Year
  Sex: Male

DRUGS (2)
  1. RAPAMUNE (SIROLIMUS, TABLET, 0) [Suspect]
     Indication: RENAL TRANSPLANT
     Dosage: 1.5 MG 1X PER 1 DAY ORAL
     Route: 048
     Dates: start: 20040603
  2. CELLCEPT [Concomitant]

REACTIONS (3)
  - INFLAMMATION LOCALISED [None]
  - NEUROPATHIC ARTHROPATHY [None]
  - OSTEODYSTROPHY [None]
